FAERS Safety Report 8511166-6 (Version None)
Quarter: 2012Q3

REPORT INFORMATION
  Report Type: 
  Country: None (occurrence: None)
  Receive Date: 20120716
  Receipt Date: 20120709
  Transmission Date: 20120928
  Serious: Yes (Hospitalization, Disabling, Other)
  Sender: FDA-Public Use
  Company Number: US-SANOFI-AVENTIS-2012SA049281

PATIENT
  Sex: Female

DRUGS (2)
  1. LANTUS [Suspect]
     Indication: TYPE 2 DIABETES MELLITUS
     Dosage: DOSE:35 UNIT(S)
     Route: 058
  2. SOLOSTAR [Suspect]
     Indication: TYPE 2 DIABETES MELLITUS

REACTIONS (8)
  - INTERVERTEBRAL DISC PROTRUSION [None]
  - RENAL FAILURE [None]
  - WOUND SECRETION [None]
  - SWELLING [None]
  - DIABETES MELLITUS INADEQUATE CONTROL [None]
  - MONOPLEGIA [None]
  - CELLULITIS [None]
  - NERVE COMPRESSION [None]
